FAERS Safety Report 23236090 (Version 3)
Quarter: 2023Q4

REPORT INFORMATION
  Report Type: Report from Study
  Country: CN (occurrence: CN)
  Receive Date: 20231128
  Receipt Date: 20231207
  Transmission Date: 20240110
  Serious: Yes (Hospitalization)
  Sender: FDA-Public Use
  Company Number: CN-002147023-NVSC2023CN249515

PATIENT
  Sex: Male

DRUGS (11)
  1. PLUVICTO [Suspect]
     Active Substance: LUTETIUM LU-177 VIPIVOTIDE TETRAXETAN
     Indication: Prostate cancer metastatic
     Dosage: 194.91 MCI, EVERY 6 WEEKS
     Route: 042
     Dates: start: 20231017, end: 20231128
  2. LOCAMETZ [Suspect]
     Active Substance: PSMA-HBED-CC
     Indication: Prostate cancer metastatic
     Dosage: 3.9 MCI, ONCE/SINGLE
     Route: 042
     Dates: start: 20230912
  3. INSULIN DEGLUDEC [Concomitant]
     Active Substance: INSULIN DEGLUDEC
     Indication: Type 2 diabetes mellitus
     Dosage: UNK
     Route: 065
     Dates: start: 2003
  4. INSULIN ASPART [Concomitant]
     Active Substance: INSULIN ASPART
     Indication: Type 2 diabetes mellitus
     Dosage: UNK
     Route: 065
     Dates: start: 2003
  5. ASPIRIN [Concomitant]
     Active Substance: ASPIRIN
     Indication: Hyperlipidaemia
     Dosage: ENETRIC COATED TABLETS
     Route: 065
     Dates: start: 2013
  6. PITAVASTATIN CALCIUM [Concomitant]
     Active Substance: PITAVASTATIN CALCIUM
     Indication: Hyperlipidaemia
     Dosage: UNK
     Route: 065
     Dates: start: 2013
  7. TRAMADOL HYDROCHLORIDE [Concomitant]
     Active Substance: TRAMADOL HYDROCHLORIDE
     Indication: Tumour pain
     Dosage: LSTAINED-RTABLETS
     Route: 065
     Dates: start: 20230910
  8. OXYCODONE AND ACETAMINOPHEN [Concomitant]
     Active Substance: ACETAMINOPHEN\OXYCODONE HYDROCHLORIDE
     Indication: Tumour pain
     Dosage: UNK
     Route: 065
     Dates: start: 20231013
  9. ENZALUTAMIDE [Concomitant]
     Active Substance: ENZALUTAMIDE
     Indication: Prostate cancer
     Dosage: UNK
     Route: 065
     Dates: start: 20231108
  10. IBUPROFEN [Concomitant]
     Active Substance: IBUPROFEN
     Indication: Pyrexia
     Dosage: UNK
     Route: 065
     Dates: start: 20231113
  11. LEUPROLIDE ACETATE [Concomitant]
     Active Substance: LEUPROLIDE ACETATE
     Indication: Prostate cancer
     Dosage: MICROSPHERES SUSTAINED RELEASE FOR INJECTION
     Route: 065
     Dates: start: 20231115

REACTIONS (1)
  - Platelet adhesiveness abnormal [Not Recovered/Not Resolved]

NARRATIVE: CASE EVENT DATE: 20231118
